FAERS Safety Report 16798474 (Version 2)
Quarter: 2019Q3

REPORT INFORMATION
  Report Type: Spontaneous
  Country: US (occurrence: US)
  Receive Date: 20190912
  Receipt Date: 20190917
  Transmission Date: 20191005
  Serious: Yes (Hospitalization, Other)
  Sender: FDA-Public Use
  Company Number: US-UNITED THERAPEUTICS-UNT-2019-015088

PATIENT
  Age: 66 Year
  Sex: Female

DRUGS (1)
  1. REMODULIN [Suspect]
     Active Substance: TREPROSTINIL
     Indication: PULMONARY ARTERIAL HYPERTENSION
     Dosage: 0.0981 ?G/KG, CONTINUING
     Route: 058
     Dates: start: 20170202

REACTIONS (7)
  - Headache [Unknown]
  - Decreased appetite [Unknown]
  - Vomiting [Unknown]
  - Device infusion issue [Unknown]
  - Dementia [Unknown]
  - Nausea [Unknown]
  - Device issue [Unknown]

NARRATIVE: CASE EVENT DATE: 201908
